FAERS Safety Report 8228905 (Version 14)
Quarter: 2019Q4

REPORT INFORMATION
  Report Type: Spontaneous
  Country: DK (occurrence: DK)
  Receive Date: 20111104
  Receipt Date: 20191004
  Transmission Date: 20200122
  Serious: Yes (Death, Hospitalization, Other)
  Sender: FDA-Public Use
  Company Number: DK-PFIZER INC-2011266562

PATIENT
  Age: 72 Year
  Sex: Female
  Weight: 103 kg

DRUGS (9)
  1. ALPRAZOLAM. [Concomitant]
     Active Substance: ALPRAZOLAM
     Dosage: 0.5 MG, 1X/DAY
     Dates: end: 20111022
  2. CENTYL K [Concomitant]
     Active Substance: BENDROFLUMETHIAZIDE\POTASSIUM CHLORIDE
     Dosage: 1 DF, DAILY
     Dates: end: 20111023
  3. ZELDOX [Suspect]
     Active Substance: ZIPRASIDONE
     Indication: SCHIZOAFFECTIVE DISORDER
     Dosage: 40 MG, 2X/DAY
     Route: 048
     Dates: start: 2005, end: 20111023
  4. MIRTAZAPINE. [Suspect]
     Active Substance: MIRTAZAPINE
     Indication: SCHIZOAFFECTIVE DISORDER
     Dosage: 30 MG, DAILY
     Route: 048
     Dates: start: 2011, end: 20111023
  5. FRAGMIN [Concomitant]
     Active Substance: DALTEPARIN SODIUM
     Dosage: UNK
  6. CIPRALEX [Suspect]
     Active Substance: ESCITALOPRAM OXALATE
     Indication: SCHIZOAFFECTIVE DISORDER
     Dosage: 30 MG, DAILY (DAILY DOSE OF 1 TABLET IN THE MORNING AND 1.5 TABLET IN THE EVENING)
     Route: 048
     Dates: start: 2005, end: 20111023
  7. FERRO DURETTER [Concomitant]
     Dosage: 100 MG, 1X/DAY
     Dates: end: 20111023
  8. LITAREX (LITHIUM CITRATE) [Suspect]
     Active Substance: LITHIUM CITRATE
     Indication: SCHIZOAFFECTIVE DISORDER
     Dosage: 1 DF, 1X/DAY (IN THE MORNING)
     Route: 048
     Dates: end: 20111023
  9. MIRTAZAPINE. [Suspect]
     Active Substance: MIRTAZAPINE
     Indication: DEPRESSION

REACTIONS (23)
  - Depressed level of consciousness [Unknown]
  - Rhabdomyolysis [Fatal]
  - Pyrexia [Fatal]
  - Hypertension [Not Recovered/Not Resolved]
  - Dyspnoea [Not Recovered/Not Resolved]
  - Blood creatine phosphokinase increased [Unknown]
  - Neuroleptic malignant syndrome [Fatal]
  - Fall [Recovered/Resolved]
  - Cardiac hypertrophy [Fatal]
  - Hepatic enzyme increased [Unknown]
  - Hepatic cirrhosis [Fatal]
  - Organ failure [Fatal]
  - Hyperdynamic left ventricle [Unknown]
  - Lacunar infarction [Fatal]
  - Hyperventilation [Fatal]
  - Acute kidney injury [Unknown]
  - Humerus fracture [Not Recovered/Not Resolved]
  - Liver disorder [Unknown]
  - Constipation [Unknown]
  - Renal failure [Fatal]
  - Lactic acidosis [Fatal]
  - Confusional state [Fatal]
  - Urinary tract infection [Unknown]

NARRATIVE: CASE EVENT DATE: 20111021
